FAERS Safety Report 18755125 (Version 1)
Quarter: 2021Q1

REPORT INFORMATION
  Report Type: Spontaneous
  Country: US (occurrence: US)
  Receive Date: 20210115
  Receipt Date: 20210115
  Transmission Date: 20210419
  Serious: Yes (Other)
  Sender: FDA-Public Use
  Company Number: None

PATIENT
  Age: 5 Week
  Sex: Female

DRUGS (1)
  1. ZIDOVUDINE. [Suspect]
     Active Substance: ZIDOVUDINE
     Dates: start: 20201203, end: 20210111

REACTIONS (2)
  - Anaemia [None]
  - Haematocrit decreased [None]

NARRATIVE: CASE EVENT DATE: 20210111
